FAERS Safety Report 25178751 (Version 1)
Quarter: 2025Q2

REPORT INFORMATION
  Report Type: Spontaneous
  Country: US (occurrence: US)
  Receive Date: 20250409
  Receipt Date: 20250409
  Transmission Date: 20250716
  Serious: Yes (Life-Threatening, Hospitalization)
  Sender: MYLAN
  Company Number: US-MYLANLABS-2025M1029504

PATIENT
  Age: 46 Year
  Sex: Female

DRUGS (2)
  1. HEPARIN [Suspect]
     Active Substance: HEPARIN SODIUM
     Indication: Prophylaxis
  2. HEPARIN [Suspect]
     Active Substance: HEPARIN SODIUM
     Indication: Anticoagulation drug level therapeutic

REACTIONS (6)
  - Heparin-induced thrombocytopenia [Recovered/Resolved]
  - Cerebral haemorrhage [Unknown]
  - Renal impairment [Unknown]
  - Hypoxia [Unknown]
  - Pulmonary oedema [Unknown]
  - Embolic stroke [Unknown]
